FAERS Safety Report 12770945 (Version 2)
Quarter: 2016Q4

REPORT INFORMATION
  Report Type: Spontaneous
  Country: US (occurrence: US)
  Receive Date: 20160922
  Receipt Date: 20161107
  Transmission Date: 20170207
  Serious: No
  Sender: FDA-Public Use
  Company Number: US-GLAXOSMITHKLINE-US2016138600

PATIENT
  Age: 68 Year
  Sex: Female

DRUGS (1)
  1. VOLTAREN [Suspect]
     Active Substance: DICLOFENAC SODIUM
     Indication: JOINT STIFFNESS
     Dosage: UNK
     Dates: start: 20160914

REACTIONS (4)
  - Wrong technique in product usage process [Unknown]
  - Incorrect dosage administered [Unknown]
  - Product quality issue [Unknown]
  - Intentional product misuse [Unknown]
